FAERS Safety Report 4410057-X (Version None)
Quarter: 2004Q3

REPORT INFORMATION
  Report Type: 
  Country: None (occurrence: None)
  Receive Date: 20040728
  Receipt Date: 20040720
  Transmission Date: 20050211
  Serious: Yes (Hospitalization)
  Sender: FDA-Public Use
  Company Number: PHHO2004AR10429

PATIENT
  Age: 68 Year
  Sex: Female

DRUGS (2)
  1. ZELMAC / HTF 919A [Suspect]
     Indication: INTESTINAL OBSTRUCTION
     Dosage: 3 PILLS/DAY
     Route: 048
     Dates: start: 20030101
  2. ZELMAC / HTF 919A [Suspect]
     Dosage: UPTO 6 PILLS/DAY
     Route: 048
     Dates: end: 20040701

REACTIONS (3)
  - DISEASE PROGRESSION [None]
  - FLUID RETENTION [None]
  - INTESTINAL OBSTRUCTION [None]
